FAERS Safety Report 18123750 (Version 2)
Quarter: 2020Q4

REPORT INFORMATION
  Report Type: Report from Study
  Country: US (occurrence: US)
  Receive Date: 20200807
  Receipt Date: 20201021
  Transmission Date: 20210113
  Serious: Yes (Hospitalization, Other)
  Sender: FDA-Public Use
  Company Number: US-GLAXOSMITHKLINE-US2020TSO007111

PATIENT
  Age: 66 Year
  Sex: Female
  Weight: 87.1 kg

DRUGS (32)
  1. CARBOPLATIN. [Suspect]
     Active Substance: CARBOPLATIN
     Dosage: 750 MG
     Route: 042
     Dates: start: 20190930, end: 20190930
  2. CARBOPLATIN. [Suspect]
     Active Substance: CARBOPLATIN
     Dosage: 750 MG
     Route: 042
     Dates: start: 20191021, end: 20191021
  3. PACLITAXEL. [Suspect]
     Active Substance: PACLITAXEL
     Indication: OVARIAN CANCER
     Dosage: 348 MG, SINGLE
     Route: 042
     Dates: start: 20190624, end: 20190624
  4. DOCETAXEL. [Concomitant]
     Active Substance: DOCETAXEL
     Route: 042
  5. DOSTARLIMAB [Suspect]
     Active Substance: DOSTARLIMAB
     Dosage: 1000 MG, SINGLE
     Dates: start: 20191202, end: 20191202
  6. PACLITAXEL. [Suspect]
     Active Substance: PACLITAXEL
     Dosage: 348 MG
     Route: 042
     Dates: start: 20190715, end: 20190715
  7. CARBOPLATIN. [Suspect]
     Active Substance: CARBOPLATIN
     Dosage: 750 AUC, SINGLE
     Route: 042
     Dates: start: 20191111, end: 20191111
  8. ONDANSETRON [Concomitant]
     Active Substance: ONDANSETRON
     Dosage: 8 MG, TID
     Route: 048
  9. PROCHLORPERAZINE. [Concomitant]
     Active Substance: PROCHLORPERAZINE
     Dosage: 10 MG, Q6 HOURS
     Route: 048
  10. FOLIC ACID. [Concomitant]
     Active Substance: FOLIC ACID
     Indication: SUPPLEMENTATION THERAPY
     Dosage: UNK
     Route: 048
     Dates: start: 20200106
  11. DOSTARLIMAB [Suspect]
     Active Substance: DOSTARLIMAB
     Dosage: 500 MG
     Dates: start: 20190805, end: 20190805
  12. CARBOPLATIN. [Suspect]
     Active Substance: CARBOPLATIN
     Indication: OVARIAN CANCER
     Dosage: 5 AUC, SINGLE
     Route: 042
     Dates: start: 20190624, end: 20190624
  13. BEVACIZUMAB. [Suspect]
     Active Substance: BEVACIZUMAB
     Indication: OVARIAN CANCER
     Dosage: UNK
     Route: 042
  14. ZOFRAN [Concomitant]
     Active Substance: ONDANSETRON HYDROCHLORIDE
     Indication: NAUSEA
  15. CIPROFLOXACIN. [Concomitant]
     Active Substance: CIPROFLOXACIN
     Dosage: 500 MG, BID
     Route: 048
  16. NIRAPARIB [Suspect]
     Active Substance: NIRAPARIB
     Indication: OVARIAN CANCER
     Dosage: 300 MG
     Dates: start: 20191202
  17. PACLITAXEL. [Suspect]
     Active Substance: PACLITAXEL
     Dosage: 348 MG
     Route: 042
     Dates: start: 20190930, end: 20190930
  18. NIRAPARIB [Suspect]
     Active Substance: NIRAPARIB
     Dosage: 200 MG
     Dates: start: 20191211, end: 20191211
  19. NIRAPARIB [Suspect]
     Active Substance: NIRAPARIB
     Dosage: 200 MG
     Dates: start: 20200102, end: 20200102
  20. IBUPROFEN. [Concomitant]
     Active Substance: IBUPROFEN
     Indication: ARTHRALGIA
     Dosage: 600 MG, Q6 HOURS
     Route: 048
     Dates: start: 20200123
  21. DOSTARLIMAB [Suspect]
     Active Substance: DOSTARLIMAB
     Dosage: 500 MG
     Dates: start: 20190930, end: 20190930
  22. DOSTARLIMAB [Suspect]
     Active Substance: DOSTARLIMAB
     Dosage: 500 MG
     Dates: start: 20191021, end: 20191021
  23. DOSTARLIMAB [Suspect]
     Active Substance: DOSTARLIMAB
     Dosage: 500 MG
     Dates: start: 20191111, end: 20191111
  24. PACLITAXEL. [Suspect]
     Active Substance: PACLITAXEL
     Dosage: 348 MG
     Route: 042
     Dates: start: 20190805, end: 20190805
  25. PACLITAXEL. [Suspect]
     Active Substance: PACLITAXEL
     Dosage: 348 MG, SINGLE
     Route: 042
     Dates: start: 20191111, end: 20191111
  26. TRIAMCINOLONE [Concomitant]
     Active Substance: TRIAMCINOLONE
     Dosage: TID
     Route: 061
  27. NIRAPARIB [Suspect]
     Active Substance: NIRAPARIB
     Dosage: 300 MG
     Dates: start: 20191205, end: 20191205
  28. DOSTARLIMAB [Suspect]
     Active Substance: DOSTARLIMAB
     Indication: OVARIAN CANCER
     Dosage: 500 MG, SINGLE
     Dates: start: 20190715, end: 20190715
  29. CARBOPLATIN. [Suspect]
     Active Substance: CARBOPLATIN
     Dosage: 669 MG
     Route: 042
     Dates: start: 20190715, end: 20190715
  30. CARBOPLATIN. [Suspect]
     Active Substance: CARBOPLATIN
     Dosage: 750 MG
     Route: 042
     Dates: start: 20190805, end: 20190805
  31. PACLITAXEL. [Suspect]
     Active Substance: PACLITAXEL
     Dosage: 348 MG
     Route: 042
     Dates: start: 20191021, end: 20191021
  32. CISPLATIN. [Concomitant]
     Active Substance: CISPLATIN
     Route: 042

REACTIONS (1)
  - Immune-mediated myocarditis [Recovered/Resolved]

NARRATIVE: CASE EVENT DATE: 20200110
